FAERS Safety Report 9400204 (Version 4)
Quarter: 2014Q1

REPORT INFORMATION
  Report Type: Spontaneous
  Country: DE (occurrence: None)
  Receive Date: 20130308
  Receipt Date: 20140107
  Transmission Date: 20141002
  Serious: Yes (Life-Threatening, Hospitalization)
  Sender: FDA-Public Use
  Company Number: 2013DE001173

PATIENT
  Age: 74 Year
  Sex: Male
  Weight: 66 kg

DRUGS (9)
  1. PONATINIB [Suspect]
     Indication: BLAST CRISIS IN MYELOGENOUS LEUKAEMIA
     Route: 048
     Dates: start: 20130105, end: 20130123
  2. ALLOPURINOL [Concomitant]
  3. SPIRONOLACTONE (SPIRONOLACTONE) [Concomitant]
  4. DELIX (RAMIPRIL) [Concomitant]
  5. BISOPROLOL (BISOPROLOL FUMARATE) [Concomitant]
  6. TARGIN (NALOXONE HYDROCHLORIDE, OXYCODONE HYDROCHLORIDE) [Concomitant]
  7. LASIX (FUROSEMIDE SODIUM) [Concomitant]
  8. NOVALGIN (METAMIZOLE SODIUM) [Concomitant]
  9. PANTOZOL (PANTOPRAZOLE SODIUM SESQUIHYDRATE) [Concomitant]

REACTIONS (18)
  - Neutropenia [None]
  - Haemoglobin decreased [None]
  - Pleural effusion [None]
  - Ejection fraction decreased [None]
  - Left ventricular dysfunction [None]
  - Aortic valve incompetence [None]
  - Mitral valve incompetence [None]
  - Tricuspid valve incompetence [None]
  - Cardiomegaly [None]
  - White blood cell count increased [None]
  - Hepatosplenomegaly [None]
  - Left atrial dilatation [None]
  - Dilatation ventricular [None]
  - Aortic valve sclerosis [None]
  - Emphysema [None]
  - Anaemia [None]
  - Thrombocytopenia [None]
  - Condition aggravated [None]
